FAERS Safety Report 8161465-5 (Version None)
Quarter: 2012Q1

REPORT INFORMATION
  Report Type: 
  Country: None (occurrence: None)
  Receive Date: 20120224
  Receipt Date: 20110120
  Transmission Date: 20120608
  Serious: Yes (Other)
  Sender: FDA-Public Use
  Company Number: US-MYLANLABS-2011S1001498

PATIENT
  Sex: Male

DRUGS (4)
  1. SPIRIVA [Concomitant]
  2. SINGULAIR [Concomitant]
  3. ALBUTEROL [Concomitant]
  4. ALPRAZOLAM [Suspect]
     Indication: ANXIETY
     Route: 048

REACTIONS (4)
  - VOMITING [None]
  - CONVULSION [None]
  - DYSARTHRIA [None]
  - DIZZINESS [None]
